FAERS Safety Report 4317194-9 (Version None)
Quarter: 2004Q1

REPORT INFORMATION
  Report Type: 
  Country: None (occurrence: None)
  Receive Date: 20040312
  Receipt Date: 20040227
  Transmission Date: 20041129
  Serious: Yes (Hospitalization)
  Sender: FDA-Public Use
  Company Number: 2004007502

PATIENT
  Age: 3 Year
  Sex: Female

DRUGS (1)
  1. ZITHROMAX [Suspect]
     Indication: SINUSITIS
     Dosage: (DAILY), ORAL
     Route: 048
     Dates: start: 20040120, end: 20040125

REACTIONS (2)
  - SERUM SICKNESS [None]
  - UNEVALUABLE EVENT [None]
